FAERS Safety Report 9374980 (Version 1)
Quarter: 2013Q2

REPORT INFORMATION
  Report Type: Spontaneous
  Country: FR (occurrence: FR)
  Receive Date: 20130628
  Receipt Date: 20130628
  Transmission Date: 20140414
  Serious: Yes (Other)
  Sender: FDA-Public Use
  Company Number: PHHY2013FR065198

PATIENT
  Age: 57 Year
  Sex: Female

DRUGS (3)
  1. EVEROLIMUS [Suspect]
     Indication: METASTATIC RENAL CELL CARCINOMA
     Dosage: 10 MG, DAILY
  2. EVEROLIMUS [Suspect]
     Dosage: 5 MG, DAILY
  3. ZOLEDRONIC ACID [Concomitant]
     Indication: METASTATIC RENAL CELL CARCINOMA

REACTIONS (5)
  - Renal tubular necrosis [Unknown]
  - Blood creatinine increased [Recovering/Resolving]
  - Weight decreased [Unknown]
  - Blood pressure increased [Unknown]
  - Haemoglobin decreased [Unknown]
